FAERS Safety Report 21640571 (Version 3)
Quarter: 2024Q1

REPORT INFORMATION
  Report Type: Report from Study
  Country: US (occurrence: US)
  Receive Date: 20221124
  Receipt Date: 20240102
  Transmission Date: 20240410
  Serious: No
  Sender: FDA-Public Use
  Company Number: US-ACADIA PHARMACEUTICALS INC.-ACA-2022-PIM-002209

PATIENT
  Sex: Male

DRUGS (27)
  1. NUPLAZID [Suspect]
     Active Substance: PIMAVANSERIN TARTRATE
     Indication: Parkinson^s disease psychosis
     Dosage: 34 MILLIGRAM, QD
     Route: 048
     Dates: start: 20220505
  2. ACLIDINIUM BROMIDE [Concomitant]
     Active Substance: ACLIDINIUM BROMIDE
     Indication: Dyspnoea
     Dosage: 400 MCG/ACTUTAION, INHALE 2 PUFFS 2 TIMES A DAY AS NEEDED
  3. ALBUTEROL SULFATE [Concomitant]
     Active Substance: ALBUTEROL SULFATE
     Indication: Wheezing
     Dosage: 90 MCG/ACTUATION, INHALE 2 PUFFS AS NEEDED
     Dates: start: 20160323
  4. SYMMETREL [Concomitant]
     Active Substance: AMANTADINE HYDROCHLORIDE
     Dosage: 100 MILLIGRAM, BID
     Route: 048
     Dates: start: 20211124, end: 20220630
  5. LIPITOR [Concomitant]
     Active Substance: ATORVASTATIN CALCIUM
     Dosage: 40 MILLIGRAM, QD
     Route: 048
     Dates: start: 20220630
  6. SINEMET CR [Concomitant]
     Active Substance: CARBIDOPA\LEVODOPA
     Dosage: 50-200 MG, TID
     Route: 048
     Dates: start: 20211124
  7. VITAMIN D3 [Concomitant]
     Active Substance: CHOLECALCIFEROL
     Dosage: 1000 UNIT, QD
     Route: 048
  8. COLACE [Concomitant]
     Active Substance: DOCUSATE SODIUM
     Dosage: 100 MILLIGRAM, BID
     Route: 048
     Dates: start: 20220408
  9. COMTAN [Concomitant]
     Active Substance: ENTACAPONE
     Dosage: 200 MILLIGRAM, 4 TIMES A DAY
     Route: 048
     Dates: start: 20211124, end: 20220630
  10. ROMYCIN [ERYTHROMYCIN] [Concomitant]
     Dosage: 5MG/GRAM; EYE OINTMENT
  11. FERROUS SULFATE [Concomitant]
     Active Substance: FERROUS SULFATE
     Dosage: 325 MILLIGRAM, QD
     Route: 048
     Dates: start: 20211123, end: 20220630
  12. LASIX [Concomitant]
     Active Substance: FUROSEMIDE
     Dosage: 20 MILLIGRAM, QD
     Route: 048
     Dates: start: 20200225, end: 20220630
  13. GARLIC [Concomitant]
     Active Substance: GARLIC
     Dosage: 1000 MILLIGRAM, QD
     Route: 048
  14. ROBINUL [Concomitant]
     Active Substance: GLYCOPYRROLATE
     Dosage: 1 MILLIGRAM, TID
     Route: 048
     Dates: start: 20220407
  15. APRESOLINE HYDROCHLORIDE [Concomitant]
     Active Substance: HYDRALAZINE HYDROCHLORIDE
     Dosage: 25 MILLIGRAM, AT BED TIME
     Route: 048
     Dates: start: 20200814
  16. HYPROMELLOSE, UNSPECIFIED [Concomitant]
     Active Substance: HYPROMELLOSE, UNSPECIFIED
     Dosage: APPLY TO EYE; 0.3%
     Route: 047
     Dates: start: 20220601
  17. XALATAN [Concomitant]
     Active Substance: LATANOPROST
     Dosage: 0.005%
     Route: 047
     Dates: start: 20220601
  18. PRINIVIL [Concomitant]
     Active Substance: LISINOPRIL
     Dosage: 30 MILLIGRAM, QD
     Route: 048
  19. MAGNESIUM OXIDE [Concomitant]
     Active Substance: MAGNESIUM OXIDE
     Dosage: 400 MILLIGRAM, QD
     Route: 048
  20. MELATONIN [Concomitant]
     Active Substance: MELATONIN
     Dosage: 10 MILLIGRAM, AT BEDTIME
     Route: 048
  21. MYRBETRIQ [Concomitant]
     Active Substance: MIRABEGRON
     Dosage: 25 MILLIGRAM, EVERY EVENING
     Route: 048
     Dates: start: 20220203
  22. PROTONIX [Concomitant]
     Active Substance: PANTOPRAZOLE SODIUM
     Dosage: 40 MILLIGRAM, QD
     Route: 048
     Dates: start: 20210218
  23. GLYCOLAX [Concomitant]
     Active Substance: POLYETHYLENE GLYCOL 3350
     Dosage: 17 GRAM/DOSE; QD
     Route: 048
     Dates: start: 20220420
  24. SEROQUEL [Concomitant]
     Active Substance: QUETIAPINE FUMARATE
     Dosage: 50 MILLIGRAM, NIGHTLY
     Route: 048
     Dates: start: 20220228
  25. VIAGRA [Concomitant]
     Active Substance: SILDENAFIL CITRATE
     Dosage: 100 MILLIGRAM, QD, AS NEEDED
     Route: 048
  26. COENZYME Q10 [Concomitant]
     Active Substance: DIETARY SUPPLEMENT\UBIDECARENONE
     Dosage: 100 MILLIGRAM
     Route: 048
  27. VITAMIN B COMPLEX [Concomitant]
     Active Substance: CYANOCOBALAMIN\DEXPANTHENOL\NIACINAMIDE\PYRIDOXINE HYDROCHLORIDE\RIBOFLAVIN 5^-PHOSPHATE SODIUM\THIA
     Dosage: 2000 MILLIGRAM, QD
     Route: 048

REACTIONS (3)
  - Parkinson^s disease [Not Recovered/Not Resolved]
  - Drug ineffective [Not Recovered/Not Resolved]
  - Hallucination, visual [Not Recovered/Not Resolved]
